FAERS Safety Report 8999459 (Version 3)
Quarter: 2013Q3

REPORT INFORMATION
  Report Type: Spontaneous
  Country: US (occurrence: US)
  Receive Date: 20130103
  Receipt Date: 20130708
  Transmission Date: 20140515
  Serious: Yes (Hospitalization, Disabling, Other)
  Sender: FDA-Public Use
  Company Number: US-GLAXOSMITHKLINE-A0816985A

PATIENT
  Age: 17 Year
  Sex: Female

DRUGS (2)
  1. LAMICTAL XR [Suspect]
     Indication: PARTIAL SEIZURES
     Dosage: 200MG PER DAY
     Route: 048
     Dates: start: 20091008, end: 20091109
  2. NO CONCURRENT MEDICATION [Concomitant]

REACTIONS (10)
  - Stevens-Johnson syndrome [Not Recovered/Not Resolved]
  - Toxic epidermal necrolysis [Unknown]
  - Blindness [Unknown]
  - Pharyngeal ulceration [Unknown]
  - Hypersensitivity [Unknown]
  - Rash vesicular [Unknown]
  - Pain [Unknown]
  - Eye swelling [Unknown]
  - Dysphagia [Unknown]
  - Skin injury [Unknown]
